FAERS Safety Report 8964890 (Version 1)
Quarter: 2012Q4

REPORT INFORMATION
  Report Type: 
  Country: US (occurrence: US)
  Receive Date: 20121214
  Receipt Date: 20121214
  Transmission Date: 20130627
  Serious: No
  Sender: FDA-Public Use
  Company Number: US-ASTRAZENECA-2012SE90603

PATIENT
  Age: 19180 Day
  Sex: Female
  Weight: 84.4 kg

DRUGS (4)
  1. SEROQUEL XR [Suspect]
     Indication: BIPOLAR DISORDER
     Route: 048
     Dates: start: 2011
  2. LAMICTAL [Concomitant]
  3. TRAZADONE [Concomitant]
  4. VISTERAL [Concomitant]

REACTIONS (3)
  - Irritability [Unknown]
  - Therapeutic response unexpected [Unknown]
  - Intentional drug misuse [Unknown]
